FAERS Safety Report 7970639-5 (Version None)
Quarter: 2011Q4

REPORT INFORMATION
  Report Type: 
  Country: None (occurrence: None)
  Receive Date: 20111212
  Receipt Date: 20111207
  Transmission Date: 20120403
  Serious: No
  Sender: FDA-Public Use
  Company Number: US-BAYER-2011-118379

PATIENT
  Age: 60 Year
  Sex: Male
  Weight: 86 kg

DRUGS (1)
  1. ALEVE (CAPLET) [Suspect]
     Indication: SCIATICA
     Dosage: UNK, QD
     Dates: start: 20111205, end: 20111206

REACTIONS (3)
  - NAUSEA [None]
  - VERTIGO [None]
  - BACK PAIN [None]
